FAERS Safety Report 13483297 (Version 2)
Quarter: 2017Q2

REPORT INFORMATION
  Report Type: Spontaneous
  Country: US (occurrence: US)
  Receive Date: 20170424
  Receipt Date: 20170502
  Transmission Date: 20170830
  Serious: Yes (Hospitalization)
  Sender: FDA-Public Use
  Company Number: US-BIOMARINAP-US-2017-113729

PATIENT
  Age: 9 Year
  Sex: Female
  Weight: 16.5 kg

DRUGS (3)
  1. VIMIZIM [Suspect]
     Active Substance: ELOSULFASE ALFA
     Indication: MUCOPOLYSACCHARIDOSIS IV
     Dosage: 35 MG, QW
     Route: 042
     Dates: start: 20160603
  2. BENADRYL [Concomitant]
     Active Substance: DIPHENHYDRAMINE HYDROCHLORIDE
     Indication: PREMEDICATION
     Dosage: 19 MG, QW
     Route: 048
  3. TYLENOL [Concomitant]
     Active Substance: ACETAMINOPHEN
     Indication: PREMEDICATION
     Dosage: 225 MG, QW
     Route: 048

REACTIONS (2)
  - Pain [Recovering/Resolving]
  - Epiphysiodesis [Recovering/Resolving]

NARRATIVE: CASE EVENT DATE: 20170424
